FAERS Safety Report 4617688-2 (Version None)
Quarter: 2005Q1

REPORT INFORMATION
  Report Type: 
  Country: None (occurrence: None)
  Receive Date: 20050322
  Receipt Date: 20050307
  Transmission Date: 20050727
  Serious: Yes (Hospitalization)
  Sender: FDA-Public Use
  Company Number: WAES 0503ITA00014

PATIENT
  Age: 39 Year
  Sex: Female

DRUGS (3)
  1. CRIXIVAN [Suspect]
     Indication: HIV INFECTION
     Dates: start: 19980101
  2. STAVUDINE [Suspect]
     Indication: HIV INFECTION
     Dates: start: 19980101
  3. EFAVIRENZ [Suspect]
     Indication: HIV INFECTION
     Dates: start: 19980101

REACTIONS (5)
  - ARTERIAL FIBROSIS [None]
  - CAROTID ARTERY STENOSIS [None]
  - FEMORAL ARTERIAL STENOSIS [None]
  - HIGH DENSITY LIPOPROTEIN DECREASED [None]
  - MULTIPLE-DRUG RESISTANCE [None]
